FAERS Safety Report 5715464-0 (Version None)
Quarter: 2008Q2

REPORT INFORMATION
  Report Type: 
  Country: None (occurrence: None)
  Receive Date: 20080422
  Receipt Date: 20080410
  Transmission Date: 20081010
  Serious: Yes (Hospitalization)
  Sender: FDA-Public Use
  Company Number: 163-21880-08040122

PATIENT
  Age: 67 Year
  Sex: Male
  Weight: 80.7403 kg

DRUGS (27)
  1. REVLIMID [Suspect]
     Indication: MYELODYSPLASTIC SYNDROME
     Dosage: 10 MG, DAILY, ORAL
     Route: 048
  2. SGN-33 [Suspect]
     Indication: MYELODYSPLASTIC SYNDROME
     Dosage: 4 MG/KG, INTRAVENOUS
     Route: 042
  3. SODIUM CHLORIDE [Concomitant]
  4. MULTIVITAMIN [Concomitant]
  5. ASCORBIC ACID [Concomitant]
  6. LEXAPRO [Concomitant]
  7. ACETAMINOPHEN [Concomitant]
  8. BENADRYL [Concomitant]
  9. FLUCONAZOLE [Concomitant]
  10. LIDOCAINE VISCOUS (LIDOCAINE HYDROCHLORIDE) [Concomitant]
  11. LORATADINE [Concomitant]
  12. MAGNESIUM/ALUM HYDROXIDE (MAGNESIUM HYDROXIDE) [Concomitant]
  13. MORPHINE SULFATE [Concomitant]
  14. MOXIFLOXACIN HCL (MOXIFLOXACIN HYDROCHLORIDE) [Concomitant]
  15. OXYMETAZOLINE (OXYMETAZOLINE) [Concomitant]
  16. SODIUM BICARBONATE MOUTHWASH (SODIUM BICARBONATE) [Concomitant]
  17. SUCRALFATE [Concomitant]
  18. ZOLPIDEM [Concomitant]
  19. 0.9 SODIUM CHLORIDE (SODIUM CHLORIDE) [Concomitant]
  20. NEULASTA [Concomitant]
  21. COMPAZINE [Concomitant]
  22. ZOFRAN [Concomitant]
  23. MIRILAX OTC (MACROGOL) [Concomitant]
  24. AVELOX [Concomitant]
  25. CODEINE/GUAIFENESIN (CHERACOL /USA/) [Concomitant]
  26. THORAZINE [Concomitant]
  27. CLARITIN [Concomitant]

REACTIONS (15)
  - ATELECTASIS [None]
  - AUTOANTIBODY POSITIVE [None]
  - COMPUTERISED TOMOGRAM ABNORMAL [None]
  - DYSPHAGIA [None]
  - EPISTAXIS [None]
  - INFREQUENT BOWEL MOVEMENTS [None]
  - IRON OVERLOAD [None]
  - LOCAL SWELLING [None]
  - LUNG INFECTION [None]
  - LYMPHOMA [None]
  - MUCOSAL INFLAMMATION [None]
  - NEPHROLITHIASIS [None]
  - PANCYTOPENIA [None]
  - PNEUMONIA [None]
  - THROAT TIGHTNESS [None]
